FAERS Safety Report 13079587 (Version 1)
Quarter: 2017Q1

REPORT INFORMATION
  Report Type: Spontaneous
  Country: DE (occurrence: DE)
  Receive Date: 20170103
  Receipt Date: 20170103
  Transmission Date: 20170428
  Serious: Yes (Other)
  Sender: FDA-Public Use
  Company Number: DE-SHIRE-DE201620281

PATIENT
  Age: 7 Year
  Sex: Male
  Weight: 26.7 kg

DRUGS (3)
  1. EQUASYM RETARD [Suspect]
     Active Substance: METHYLPHENIDATE HYDROCHLORIDE
     Indication: ATTENTION DEFICIT/HYPERACTIVITY DISORDER
     Dosage: 20 MG, UNKNOWN
     Route: 048
     Dates: start: 201601
  2. INTUNIV [Suspect]
     Active Substance: GUANFACINE HYDROCHLORIDE
     Indication: ATTENTION DEFICIT/HYPERACTIVITY DISORDER
     Dosage: 3 MG, UNKNOWN
     Route: 048
     Dates: start: 201608, end: 201612
  3. INTUNIV [Suspect]
     Active Substance: GUANFACINE HYDROCHLORIDE
     Dosage: UNK, OTHER (DOSE INCREASED PER 1 MG STEPS FOR 4 WEEKS)
     Route: 048
     Dates: start: 2016, end: 2016

REACTIONS (5)
  - Angina pectoris [Recovered/Resolved]
  - Residual urine volume increased [Recovered/Resolved]
  - Chest pain [Recovered/Resolved]
  - Pollakiuria [Recovered/Resolved]
  - Micturition urgency [Recovered/Resolved]

NARRATIVE: CASE EVENT DATE: 2016
